FAERS Safety Report 8334344-8 (Version None)
Quarter: 2012Q1

REPORT INFORMATION
  Report Type: 
  Country: None (occurrence: None)
  Receive Date: 20120329
  Receipt Date: 20110427
  Transmission Date: 20120608
  Serious: Yes (Other)
  Sender: FDA-Public Use
  Company Number: WAES 1104USA04050

PATIENT
  Age: 58 Year
  Sex: Female
  Weight: 80.7403 kg

DRUGS (3)
  1. DOCETAXEL [Concomitant]
  2. CYCLOPHOSPHAMIDE [Concomitant]
  3. FOSAPREPITANT DIMEGLUMINE [Suspect]
     Indication: ANTIEMETIC SUPPORTIVE CARE
     Dosage: 150 MG/1X/IV
     Route: 042
     Dates: start: 20110426, end: 20110426

REACTIONS (2)
  - BACK PAIN [None]
  - FLUSHING [None]
